FAERS Safety Report 4986590-9 (Version None)
Quarter: 2006Q2

REPORT INFORMATION
  Report Type: 
  Country: None (occurrence: None)
  Receive Date: 20060428
  Receipt Date: 20060421
  Transmission Date: 20061013
  Serious: Yes (Other)
  Sender: FDA-Public Use
  Company Number: 2006UW07155

PATIENT
  Age: 33 Year
  Sex: Male
  Weight: 79.4 kg

DRUGS (3)
  1. SEROQUEL [Suspect]
     Indication: BIPOLAR I DISORDER
     Dosage: SEROQUEL DOSE PACK
     Route: 048
     Dates: start: 20060419
  2. SEROQUEL [Suspect]
     Indication: ANXIETY
     Dosage: SEROQUEL DOSE PACK
     Route: 048
     Dates: start: 20060419
  3. LEXAPRO [Concomitant]

REACTIONS (4)
  - DIZZINESS [None]
  - EYE DISORDER [None]
  - HEAD INJURY [None]
  - MUSCULOSKELETAL STIFFNESS [None]
